FAERS Safety Report 19748598 (Version 1)
Quarter: 2021Q3

REPORT INFORMATION
  Report Type: Report from Study
  Country: US (occurrence: US)
  Receive Date: 20210826
  Receipt Date: 20210826
  Transmission Date: 20211014
  Serious: No
  Sender: FDA-Public Use
  Company Number: NVSC2021US189322

PATIENT
  Age: 54 Year
  Sex: Female

DRUGS (1)
  1. COSENTYX [Suspect]
     Active Substance: SECUKINUMAB
     Indication: PSORIASIS
     Dosage: 300 MG, OTHER ( EVERY WEEK FOR FIVE WEEKS AND THEN EVERY FOUR WEEK)
     Route: 058
     Dates: start: 20210720

REACTIONS (4)
  - Skin swelling [Unknown]
  - Injection site erythema [Unknown]
  - Headache [Unknown]
  - Dry mouth [Unknown]

NARRATIVE: CASE EVENT DATE: 20210722
